FAERS Safety Report 8445475-6 (Version None)
Quarter: 2012Q2

REPORT INFORMATION
  Report Type: 
  Country: None (occurrence: None)
  Receive Date: 20120618
  Receipt Date: 20120612
  Transmission Date: 20120825
  Serious: Yes (Other)
  Sender: FDA-Public Use
  Company Number: PHHY2012IT048714

PATIENT
  Sex: Female

DRUGS (5)
  1. TOBRAMYCIN [Concomitant]
     Dosage: 500 MG, UNK
  2. MEROPENEM [Suspect]
     Indication: CHRONIC OBSTRUCTIVE PULMONARY DISEASE
     Dosage: 6 G DAILY
     Route: 042
     Dates: start: 20120526, end: 20120527
  3. CREON [Concomitant]
  4. EVION [Concomitant]
  5. MERREM [Concomitant]

REACTIONS (4)
  - DYSPHONIA [None]
  - DYSPNOEA [None]
  - CONJUNCTIVAL HYPERAEMIA [None]
  - URTICARIA [None]
